FAERS Safety Report 20828203 (Version 5)
Quarter: 2022Q3

REPORT INFORMATION
  Report Type: Spontaneous
  Country: US (occurrence: US)
  Receive Date: 20220513
  Receipt Date: 20220922
  Transmission Date: 20221027
  Serious: Yes (Hospitalization)
  Sender: FDA-Public Use
  Company Number: US-SANOFI-01089570

PATIENT
  Age: 53 Year
  Sex: Female

DRUGS (4)
  1. FERRLECIT [Suspect]
     Active Substance: SODIUM FERRIC GLUCONATE COMPLEX
     Indication: Iron deficiency anaemia
     Dosage: 250 MG, 1X
     Dates: start: 20220503, end: 20220503
  2. BENADRYL [Concomitant]
     Active Substance: DIPHENHYDRAMINE HYDROCHLORIDE
     Indication: Lip swelling
     Dosage: 50 MG
     Route: 042
  3. DEXAMETHASONE [Concomitant]
     Active Substance: DEXAMETHASONE
     Indication: Blood pressure measurement
     Dosage: 10 MG
     Route: 042
  4. PEPCID [Concomitant]
     Active Substance: FAMOTIDINE
     Indication: Blood pressure measurement
     Dosage: 20 MG
     Route: 042

REACTIONS (7)
  - Swollen tongue [Unknown]
  - Lip swelling [Unknown]
  - Chest pain [Unknown]
  - Orbital swelling [Unknown]
  - Hypersensitivity [Unknown]
  - Malaise [Unknown]
  - Slow response to stimuli [Unknown]

NARRATIVE: CASE EVENT DATE: 20220503
